FAERS Safety Report 22228215 (Version 6)
Quarter: 2023Q4

REPORT INFORMATION
  Report Type: Spontaneous
  Country: FR (occurrence: FR)
  Receive Date: 20230419
  Receipt Date: 20231207
  Transmission Date: 20240109
  Serious: Yes (Other)
  Sender: FDA-Public Use
  Company Number: FR-Accord-308113

PATIENT
  Age: 68 Year
  Sex: Female

DRUGS (19)
  1. AFATINIB [Suspect]
     Active Substance: AFATINIB
     Indication: Lung adenocarcinoma
     Dosage: UNK
     Dates: start: 2020, end: 202009
  2. OSIMERTINIB [Suspect]
     Active Substance: OSIMERTINIB
     Indication: Gastrointestinal stromal tumour
     Dosage: 40 MILLIGRAM, QD
     Dates: start: 202009
  3. OSIMERTINIB [Suspect]
     Active Substance: OSIMERTINIB
     Indication: Lung adenocarcinoma
     Dosage: 80 MILLIGRAM, QD
     Dates: start: 202009
  4. OSIMERTINIB [Suspect]
     Active Substance: OSIMERTINIB
     Indication: Drug resistance
     Dosage: 300 MILLIGRAM, QD
     Route: 065
     Dates: start: 202104
  5. OSIMERTINIB [Suspect]
     Active Substance: OSIMERTINIB
     Dosage: 40 MILLIGRAM, QD (DOSE REDUCTION)
     Route: 065
     Dates: start: 202104
  6. IMATINIB [Suspect]
     Active Substance: IMATINIB
     Indication: Lung adenocarcinoma
     Dosage: 300 MG
     Route: 065
     Dates: start: 202104, end: 202110
  7. IMATINIB [Suspect]
     Active Substance: IMATINIB
     Indication: Non-small cell lung cancer
     Dosage: 200 MG
     Route: 065
     Dates: start: 202201, end: 202203
  8. IMATINIB [Suspect]
     Active Substance: IMATINIB
     Indication: Gastrointestinal stromal tumour
     Dosage: 400 MG
     Route: 065
     Dates: end: 202009
  9. IMATINIB [Suspect]
     Active Substance: IMATINIB
     Indication: Product used for unknown indication
     Dosage: UNK
     Route: 065
     Dates: start: 200812
  10. IMATINIB [Suspect]
     Active Substance: IMATINIB
     Dosage: 200 MG
     Route: 065
     Dates: start: 202104, end: 202104
  11. IMATINIB [Suspect]
     Active Substance: IMATINIB
     Dosage: 200 MG
     Route: 065
     Dates: start: 202206
  12. IMATINIB [Suspect]
     Active Substance: IMATINIB
     Dosage: 100 MG
     Route: 065
     Dates: start: 202203, end: 202206
  13. IMATINIB [Suspect]
     Active Substance: IMATINIB
     Dosage: 400 MG
     Route: 065
     Dates: end: 200804
  14. IMATINIB [Suspect]
     Active Substance: IMATINIB
     Dates: start: 2020, end: 2020
  15. CRIZOTINIB [Suspect]
     Active Substance: CRIZOTINIB
     Indication: Lung adenocarcinoma
     Dosage: 250 MG, QD (DOSE INCREASED)
     Route: 065
     Dates: start: 202201
  16. CRIZOTINIB [Suspect]
     Active Substance: CRIZOTINIB
     Indication: Non-small cell lung cancer
     Dosage: 250 MG, QD
     Route: 065
     Dates: start: 202110
  17. CRIZOTINIB [Suspect]
     Active Substance: CRIZOTINIB
     Indication: Drug resistance
     Dosage: 200 MG, QD
     Route: 065
     Dates: end: 202203
  18. CRIZOTINIB [Suspect]
     Active Substance: CRIZOTINIB
     Dosage: 250 MG, QD
     Route: 065
     Dates: start: 202203, end: 202206
  19. CRIZOTINIB [Suspect]
     Active Substance: CRIZOTINIB
     Dosage: 200 MG, QD (DOSE DECREASED)
     Route: 065
     Dates: start: 202111

REACTIONS (13)
  - Diarrhoea [Recovered/Resolved]
  - Acute kidney injury [Recovered/Resolved]
  - Alanine aminotransferase increased [Recovered/Resolved]
  - Hepatic cytolysis [Recovering/Resolving]
  - Blood creatine phosphokinase increased [Recovered/Resolved]
  - Drug interaction [Recovering/Resolving]
  - Drug level increased [Recovering/Resolving]
  - Lung adenocarcinoma [Unknown]
  - Neoplasm progression [Unknown]
  - Drug resistance mutation [Unknown]
  - Drug ineffective [Unknown]
  - Off label use [Unknown]
  - Overdose [Unknown]

NARRATIVE: CASE EVENT DATE: 20200101
